FAERS Safety Report 11953290 (Version 1)
Quarter: 2016Q1

REPORT INFORMATION
  Report Type: Spontaneous
  Country: US (occurrence: US)
  Receive Date: 20160126
  Receipt Date: 20160126
  Transmission Date: 20160526
  Serious: Yes (Hospitalization)
  Sender: FDA-Public Use
  Company Number: US-PFIZER INC-2016035303

PATIENT
  Age: 37 Year
  Sex: Male
  Weight: 81.63 kg

DRUGS (1)
  1. ECHOTHIOPHATE IODIDE [Suspect]
     Active Substance: ECHOTHIOPHATE IODIDE
     Indication: LOCAL ANAESTHESIA
     Dosage: 0.5 MG, UNK (0.2 ML. OF A 0.25 PER CENT)
     Route: 023

REACTIONS (10)
  - Salivary hypersecretion [Recovered/Resolved]
  - Chest pain [Recovered/Resolved]
  - Off label use [Recovered/Resolved]
  - Diarrhoea [Recovered/Resolved]
  - Toxicity to various agents [Recovered/Resolved]
  - Pallor [Recovered/Resolved]
  - Hyperhidrosis [Recovered/Resolved]
  - Asthenia [Recovered/Resolved]
  - Nausea [Recovered/Resolved]
  - Vomiting [Recovered/Resolved]
